FAERS Safety Report 8974251 (Version 1)
Quarter: 2012Q4

REPORT INFORMATION
  Report Type: Spontaneous
  Country: US (occurrence: None)
  Receive Date: 20121211
  Receipt Date: 20121211
  Transmission Date: 20130627
  Serious: Yes (Other)
  Sender: FDA-Public Use
  Company Number: 2012SA088375

PATIENT
  Age: 59 Year
  Sex: Male

DRUGS (1)
  1. ICY HOT [Suspect]
     Route: 061

REACTIONS (4)
  - Application site burn [None]
  - Application site vesicles [None]
  - Application site erythema [None]
  - Product quality issue [None]
